FAERS Safety Report 13129125 (Version 1)
Quarter: 2017Q1

REPORT INFORMATION
  Report Type: Spontaneous
  Country: US (occurrence: US)
  Receive Date: 20170118
  Receipt Date: 20170118
  Transmission Date: 20170428
  Serious: Yes (Other)
  Sender: FDA-Public Use
  Company Number: None

PATIENT
  Age: 75 Year
  Sex: Male
  Weight: 79.45 kg

DRUGS (4)
  1. TAMSULOSIN [Suspect]
     Active Substance: TAMSULOSIN
     Indication: PROSTATIC DISORDER
     Dosage: 1 PILL ONCE DAILY BY MOUTH
     Route: 048
     Dates: start: 20160701, end: 20160705
  2. TAMSULOSIN [Suspect]
     Active Substance: TAMSULOSIN
     Indication: POLLAKIURIA
     Dosage: 1 PILL ONCE DAILY BY MOUTH
     Route: 048
     Dates: start: 20160701, end: 20160705
  3. FERROUS SULFATE. [Concomitant]
     Active Substance: FERROUS SULFATE
  4. ALFUZOSIN HCL [Concomitant]
     Active Substance: ALFUZOSIN HYDROCHLORIDE

REACTIONS (2)
  - Headache [None]
  - No reaction on previous exposure to drug [None]

NARRATIVE: CASE EVENT DATE: 20160705
